FAERS Safety Report 5491132-8 (Version None)
Quarter: 2007Q4

REPORT INFORMATION
  Report Type: 
  Country: None (occurrence: None)
  Receive Date: 20071019
  Receipt Date: 20071008
  Transmission Date: 20080405
  Serious: Yes (Hospitalization, Other)
  Sender: FDA-Public Use
  Company Number: US-PFIZER INC-2007074078

PATIENT
  Age: 46 Year
  Sex: Female
  Weight: 68.181 kg

DRUGS (10)
  1. CHANTIX [Suspect]
     Indication: SMOKING CESSATION THERAPY
  2. SYNTHROID [Concomitant]
  3. XANAX [Concomitant]
     Indication: ANXIETY
  4. METHADONE HCL [Concomitant]
     Indication: PAIN
  5. VICODIN [Concomitant]
     Indication: PAIN
  6. FENOFIBRATE [Concomitant]
     Indication: BLOOD TRIGLYCERIDES INCREASED
  7. LASIX [Concomitant]
  8. ADVAIR DISKUS 100/50 [Concomitant]
     Indication: CHRONIC OBSTRUCTIVE PULMONARY DISEASE
  9. COMBIVENT [Concomitant]
     Indication: CHRONIC OBSTRUCTIVE PULMONARY DISEASE
  10. ALBUTEROL [Concomitant]
     Indication: CHRONIC OBSTRUCTIVE PULMONARY DISEASE
     Route: 055

REACTIONS (7)
  - ABDOMINAL PAIN UPPER [None]
  - ABNORMAL DREAMS [None]
  - APPENDICITIS [None]
  - MALAISE [None]
  - NAUSEA [None]
  - SMOKER [None]
  - VOMITING [None]
